FAERS Safety Report 21068963 (Version 2)
Quarter: 2022Q3

REPORT INFORMATION
  Report Type: Spontaneous
  Country: PL (occurrence: None)
  Receive Date: 20220712
  Receipt Date: 20220721
  Transmission Date: 20221027
  Serious: No
  Sender: FDA-Public Use
  Company Number: PL-ROCHE-3132809

PATIENT
  Age: 64 Year
  Sex: Female

DRUGS (1)
  1. TECENTRIQ [Suspect]
     Active Substance: ATEZOLIZUMAB
     Indication: Squamous cell carcinoma of lung
     Dosage: ON 30/JAN/2022 - SHE RECEIVED HER 40TH INFUSION OF ATEZOLIZUMAB WITH VERY GOOD TOLERANCE
     Route: 041
     Dates: start: 20200326

REACTIONS (1)
  - Weight increased [Unknown]
